FAERS Safety Report 11880425 (Version 1)
Quarter: 2015Q4

REPORT INFORMATION
  Report Type: Spontaneous
  Country: US (occurrence: US)
  Receive Date: 20151230
  Receipt Date: 20151230
  Transmission Date: 20160305
  Serious: No
  Sender: FDA-Public Use
  Company Number: US-CELGENEUS-USA-2015126221

PATIENT
  Sex: Male

DRUGS (1)
  1. POMALYST [Suspect]
     Active Substance: POMALIDOMIDE
     Indication: PLASMA CELL MYELOMA
     Dosage: 4 MILLIGRAM
     Route: 048
     Dates: start: 20150223

REACTIONS (6)
  - Pyrexia [Unknown]
  - Abdominal discomfort [Unknown]
  - Headache [Unknown]
  - Chest pain [Unknown]
  - Pain [Unknown]
  - Oropharyngeal pain [Unknown]
